FAERS Safety Report 9490797 (Version 1)
Quarter: 2013Q3

REPORT INFORMATION
  Report Type: Spontaneous
  Country: US (occurrence: None)
  Receive Date: 20130826
  Receipt Date: 20130826
  Transmission Date: 20140515
  Serious: Yes (Other)
  Sender: FDA-Public Use
  Company Number: ADR-2013-01464

PATIENT
  Sex: Male

DRUGS (2)
  1. BACLOFEN INTRATHECAL [Suspect]
     Indication: SPINAL PAIN
     Route: 037
  2. DILAUDID [Suspect]
     Route: 037

REACTIONS (3)
  - Drug effect decreased [None]
  - Back pain [None]
  - Insomnia [None]
